FAERS Safety Report 8609131-3 (Version None)
Quarter: 2012Q3

REPORT INFORMATION
  Report Type: 
  Country: None (occurrence: None)
  Receive Date: 20120821
  Receipt Date: 20120629
  Transmission Date: 20120928
  Serious: No
  Sender: FDA-Public Use
  Company Number: US-009507513-2012SP027118

PATIENT

DRUGS (2)
  1. CLARITIN KIDS [Suspect]
     Indication: SEASONAL ALLERGY
     Dosage: 5 MG, QD
     Route: 048
     Dates: start: 20110401
  2. CLARITIN KIDS [Suspect]
     Indication: MEDICAL OBSERVATION

REACTIONS (1)
  - DYSGEUSIA [None]
